FAERS Safety Report 9261300 (Version 2)
Quarter: 2013Q2

REPORT INFORMATION
  Report Type: Spontaneous
  Country: US (occurrence: US)
  Receive Date: 20130429
  Receipt Date: 20130613
  Transmission Date: 20140414
  Serious: Yes (Other)
  Sender: FDA-Public Use
  Company Number: US-BAYER-2013-052320

PATIENT
  Age: 39 Year
  Sex: Female
  Weight: 97.51 kg

DRUGS (18)
  1. YAZ [Suspect]
  2. YASMIN [Suspect]
  3. FLURANDRENOLIDE [Concomitant]
  4. MONTELUKAST SODIUM [Concomitant]
  5. SIMVASTATIN [Concomitant]
  6. CITALOPRAM HYDROBROMIDE [Concomitant]
  7. LORATADINE [Concomitant]
  8. LEVOTHYROXINE SODIUM [Concomitant]
  9. MULTIVITAMIN [Concomitant]
     Dosage: UNK
     Dates: start: 20100304
  10. MAGNESIUM [Concomitant]
     Dosage: UNK
     Dates: start: 20100304
  11. ALBUTEROL INHALER [Concomitant]
     Dosage: UNK
     Dates: start: 20100304
  12. FISH OIL [Concomitant]
     Dosage: UNK
     Dates: start: 20100304
  13. ADVAIR [Concomitant]
  14. MUCINEX [Concomitant]
     Dosage: UNK
     Dates: start: 20100304
  15. ROBITUSSIN-PE [Concomitant]
  16. FLUCONAZOLE [Concomitant]
     Dosage: UNK UNK, ONCE
  17. TYLENOL #3 [Concomitant]
  18. BACITRACIN [Concomitant]
     Dosage: 500 U/G
     Route: 061
     Dates: start: 20100105

REACTIONS (1)
  - Deep vein thrombosis [None]
